FAERS Safety Report 9788958 (Version 1)
Quarter: 2013Q4

REPORT INFORMATION
  Report Type: Spontaneous
  Country: US (occurrence: US)
  Receive Date: 20131230
  Receipt Date: 20131230
  Transmission Date: 20140711
  Serious: No
  Sender: FDA-Public Use
  Company Number: US-PFIZER INC-2013372483

PATIENT
  Age: 30 Year
  Sex: Female
  Weight: 102.73 kg

DRUGS (10)
  1. LYRICA [Suspect]
     Indication: DIABETIC NEUROPATHY
     Dosage: 100 MG, 3X/DAY
     Route: 048
  2. ULTRAM [Concomitant]
     Indication: PAIN
     Dosage: 50 MG, 2X/DAY
  3. PROAIR HFA [Concomitant]
     Dosage: 2 DF, EVERY 4 HOURS AS NEEDED
  4. ALPRAZOLAM [Concomitant]
     Indication: ANXIETY
     Dosage: 1 MG, 2X/DAY
     Route: 048
  5. CITALOPRAM HYDROBROMIDE [Concomitant]
     Dosage: 20 MG, 1X/DAY
     Route: 048
  6. TOPAMAX [Concomitant]
     Dosage: 50 MG, 2X/DAY
  7. CYCLOBENZAPRINE HCL [Concomitant]
     Indication: MUSCLE SPASMS
     Dosage: 10 MG, AS NEEDED (EVERY 8 HOURS)
     Route: 048
  8. KETOPROFEN [Concomitant]
     Dosage: 75 MG, 2X/DAY
     Route: 048
  9. HYDROCODONE W/ACETAMINOPHEN [Concomitant]
     Indication: PAIN
     Dosage: 1 DF, 2X/DAY (5-325 MG (1 TAB UP TO TWICE DAILY)
     Route: 048
  10. MULTIVITAMINS [Concomitant]
     Dosage: UNK, DAILY

REACTIONS (1)
  - Diabetic neuropathy [Unknown]
